FAERS Safety Report 4652742-0 (Version None)
Quarter: 2005Q2

REPORT INFORMATION
  Report Type: 
  Country: None (occurrence: None)
  Receive Date: 20050503
  Receipt Date: 20050422
  Transmission Date: 20051028
  Serious: Yes (Death)
  Sender: FDA-Public Use
  Company Number: 05-04-0697

PATIENT
  Sex: Female

DRUGS (3)
  1. ALBUTEROL SULFATE [Suspect]
     Dosage: 2 PUFFS PRN INHALATION
     Route: 055
  2. SPIRIVA [Suspect]
     Dosage: 18MCG, INHALATION
     Route: 055
  3. SERETIDE UNKNOWN [Suspect]
     Dosage: 2 PUFFS BD; INHALATION
     Route: 055

REACTIONS (2)
  - BRONCHITIS ACUTE [None]
  - CHRONIC OBSTRUCTIVE AIRWAYS DISEASE EXACERBATED [None]
